FAERS Safety Report 18598928 (Version 6)
Quarter: 2021Q4

REPORT INFORMATION
  Report Type: Report from Study
  Country: DE (occurrence: DE)
  Receive Date: 20201210
  Receipt Date: 20211013
  Transmission Date: 20220303
  Serious: Yes (Other)
  Sender: FDA-Public Use
  Company Number: DE-ROCHE-2724846

PATIENT
  Age: 71 Year
  Sex: Female
  Weight: 56 kg

DRUGS (9)
  1. CAPECITABINE [Suspect]
     Active Substance: CAPECITABINE
     Indication: HER2 negative breast cancer
     Route: 048
     Dates: start: 20201016
  2. CAPECITABINE [Suspect]
     Active Substance: CAPECITABINE
     Route: 048
     Dates: start: 20210408
  3. BEVACIZUMAB [Suspect]
     Active Substance: BEVACIZUMAB
     Indication: HER2 negative breast cancer
     Route: 042
     Dates: start: 20201016
  4. ZINC [Concomitant]
     Active Substance: ZINC
     Route: 048
     Dates: start: 2015
  5. PANTOPRAZOLE SODIUM [Concomitant]
     Active Substance: PANTOPRAZOLE SODIUM
     Route: 048
     Dates: start: 2015
  6. ASPIRIN [Concomitant]
     Active Substance: ASPIRIN
     Route: 048
     Dates: start: 2015
  7. KALINOR [Concomitant]
     Route: 048
     Dates: start: 2015
  8. SELENIUM [Concomitant]
     Active Substance: SELENIUM
     Route: 048
     Dates: start: 2015
  9. CHOLECALCIFEROL [Concomitant]
     Active Substance: CHOLECALCIFEROL
     Route: 048
     Dates: start: 2015

REACTIONS (4)
  - Fatigue [Unknown]
  - Hypertension [Not Recovered/Not Resolved]
  - Visual impairment [Unknown]
  - Palmar-plantar erythrodysaesthesia syndrome [Unknown]

NARRATIVE: CASE EVENT DATE: 20201101
